FAERS Safety Report 19540229 (Version 1)
Quarter: 2021Q3

REPORT INFORMATION
  Report Type: Spontaneous
  Country: US (occurrence: US)
  Receive Date: 20210713
  Receipt Date: 20210713
  Transmission Date: 20211014
  Serious: Yes (Other)
  Sender: FDA-Public Use
  Company Number: US-GLENMARK PHARMACEUTICALS-2020GMK050331

PATIENT

DRUGS (4)
  1. ATOMOXETINE CAPSULES USP [18MG] [Suspect]
     Active Substance: ATOMOXETINE HYDROCHLORIDE
     Indication: HYPOTENSION
     Dosage: 18 MILLIGRAM, OD (AT NIGHT)
     Route: 048
     Dates: start: 202010, end: 202010
  2. ATOMOXETINE CAPSULES USP [18MG] [Suspect]
     Active Substance: ATOMOXETINE HYDROCHLORIDE
     Indication: SYNCOPE
  3. ATOMOXETINE CAPSULES USP [18MG] [Suspect]
     Active Substance: ATOMOXETINE HYDROCHLORIDE
     Indication: ORTHOSTATIC HYPOTENSION
     Dosage: 18 MILLIGRAM, OD (IN THE MORNING)
     Route: 048
     Dates: start: 202010, end: 2020
  4. SINEMET [Concomitant]
     Active Substance: CARBIDOPA\LEVODOPA
     Indication: PARKINSON^S DISEASE
     Dosage: 1.5 DOSAGE FORM, QID (1.5 TABLETS, 4 TIMES DAILY)
     Route: 065

REACTIONS (4)
  - Condition aggravated [Not Recovered/Not Resolved]
  - Orthostatic hypotension [Not Recovered/Not Resolved]
  - Syncope [Not Recovered/Not Resolved]
  - Drug ineffective for unapproved indication [Unknown]

NARRATIVE: CASE EVENT DATE: 202010
